FAERS Safety Report 8779897 (Version 1)
Quarter: 2012Q4

REPORT INFORMATION
  Report Type: 
  Country: US (occurrence: US)
  Receive Date: 20120912
  Receipt Date: 20120912
  Transmission Date: 20130627
  Serious: No
  Sender: FDA-Public Use
  Company Number: US-VERTEX PHARMACEUTICAL INC.-AE-2012-005765

PATIENT
  Age: 56 Year
  Sex: Female

DRUGS (11)
  1. VX-950 [Suspect]
     Indication: HEPATITIS C
     Dosage: 750 mg, tid
     Route: 048
  2. RIBAVIRIN [Concomitant]
     Indication: HEPATITIS C
     Dosage: 200 mg, UNK
     Route: 048
     Dates: start: 20120409
  3. PEGASYS [Concomitant]
     Indication: HEPATITIS C
     Route: 058
     Dates: start: 20120409
  4. DICLOFENAC EC [Concomitant]
  5. FAMOTIDINE [Concomitant]
  6. LISINOPRIL [Concomitant]
  7. LORAZEPAM [Concomitant]
  8. METOPROLOL [Concomitant]
  9. SERTRALINE [Concomitant]
  10. TRAZODONE [Concomitant]
  11. MIRALAX POW [Concomitant]

REACTIONS (7)
  - Constipation [Unknown]
  - Fatigue [Unknown]
  - Red blood cell count decreased [Unknown]
  - Rash [Unknown]
  - Haematochezia [Unknown]
  - Painful defaecation [Unknown]
  - Diarrhoea [Unknown]
